FAERS Safety Report 5442978-3 (Version None)
Quarter: 2007Q3

REPORT INFORMATION
  Report Type: 
  Country: None (occurrence: None)
  Receive Date: 20070821
  Receipt Date: 20070806
  Transmission Date: 20080115
  Serious: Yes (Hospitalization, Other)
  Sender: FDA-Public Use
  Company Number: 200710849BVD

PATIENT
  Age: 19 Year
  Sex: Male
  Weight: 73 kg

DRUGS (9)
  1. KOGENATE [Suspect]
     Indication: PILONIDAL SINUS REPAIR
     Dosage: SEE IMAGE
     Route: 042
     Dates: start: 20030101
  2. KOGENATE [Suspect]
     Indication: PILONIDAL SINUS REPAIR
     Dosage: SEE IMAGE
     Route: 042
     Dates: start: 20070410
  3. KOGENATE [Suspect]
     Indication: PILONIDAL SINUS REPAIR
     Dosage: SEE IMAGE
     Route: 042
     Dates: start: 20070411
  4. KOGENATE [Suspect]
     Indication: PILONIDAL SINUS REPAIR
     Dosage: SEE IMAGE
     Route: 042
     Dates: start: 20070412
  5. KOGENATE [Suspect]
     Indication: PILONIDAL SINUS REPAIR
     Dosage: SEE IMAGE
     Route: 042
     Dates: start: 20070415
  6. KOGENATE [Suspect]
     Indication: PILONIDAL SINUS REPAIR
     Dosage: SEE IMAGE
     Route: 042
     Dates: start: 20070422
  7. KOGENATE [Suspect]
     Indication: PILONIDAL SINUS REPAIR
     Dosage: SEE IMAGE
     Route: 042
     Dates: start: 20070429
  8. KOGENATE [Suspect]
     Indication: PILONIDAL SINUS REPAIR
     Dosage: SEE IMAGE
     Route: 042
     Dates: start: 20070430
  9. KOGENATE [Suspect]
     Indication: PILONIDAL SINUS REPAIR
     Dosage: SEE IMAGE
     Route: 042
     Dates: start: 20070501

REACTIONS (4)
  - FACTOR VIII INHIBITION [None]
  - HAEMATOMA [None]
  - IMPAIRED HEALING [None]
  - WOUND HAEMORRHAGE [None]
